FAERS Safety Report 4860827-9 (Version None)
Quarter: 2005Q4

REPORT INFORMATION
  Report Type: 
  Country: None (occurrence: None)
  Receive Date: 20051216
  Receipt Date: 20051212
  Transmission Date: 20060501
  Serious: Yes (Hospitalization, Other)
  Sender: FDA-Public Use
  Company Number: 163-20785-05110182

PATIENT
  Age: 77 Year
  Sex: Male

DRUGS (5)
  1. THALOMID [Suspect]
     Indication: MULTIPLE MYELOMA
     Dosage: SEE IMAGE
     Route: 048
     Dates: start: 20040901, end: 20050101
  2. THALOMID [Suspect]
     Indication: MULTIPLE MYELOMA
     Dosage: SEE IMAGE
     Route: 048
     Dates: end: 20051101
  3. THALOMID [Suspect]
     Indication: MULTIPLE MYELOMA
     Dosage: SEE IMAGE
     Route: 048
  4. GLUCOSAMINE (GLUCOSAMINE) [Concomitant]
  5. WARFARIN SODIUM [Concomitant]

REACTIONS (4)
  - BENIGN COLONIC NEOPLASM [None]
  - DEPRESSION [None]
  - NEUROPATHY [None]
  - PULMONARY EMBOLISM [None]
